FAERS Safety Report 21440565 (Version 1)
Quarter: 2022Q4

REPORT INFORMATION
  Report Type: Spontaneous
  Country: US (occurrence: None)
  Receive Date: 20221007
  Receipt Date: 20221007
  Transmission Date: 20230113
  Serious: Yes (unspecified)
  Sender: FDA-Public Use
  Company Number: None

PATIENT
  Age: 64 Year
  Sex: Male
  Weight: 128 kg

DRUGS (2)
  1. MEROPENEM\VABORBACTAM [Suspect]
     Active Substance: MEROPENEM\VABORBACTAM
     Indication: Wound infection
     Dosage: FREQUENCY : TWICE A DAY;?
     Route: 042
     Dates: start: 20220706, end: 20220706
  2. MEROPENEM\VABORBACTAM [Suspect]
     Active Substance: MEROPENEM\VABORBACTAM
     Indication: Pathogen resistance

REACTIONS (3)
  - Angioedema [None]
  - Anaphylactic reaction [None]
  - Leg amputation [None]

NARRATIVE: CASE EVENT DATE: 20220706
